FAERS Safety Report 24403526 (Version 3)
Quarter: 2024Q4

REPORT INFORMATION
  Report Type: Spontaneous
  Country: JP (occurrence: JP)
  Receive Date: 20241007
  Receipt Date: 20241209
  Transmission Date: 20250115
  Serious: Yes (Death)
  Sender: ELI LILLY AND COMPANY
  Company Number: JP-ELI_LILLY_AND_COMPANY-JP202410002101

PATIENT
  Age: 71 Year
  Sex: Female
  Weight: 41.5 kg

DRUGS (8)
  1. CYRAMZA [Suspect]
     Active Substance: RAMUCIRUMAB
     Indication: Lung adenocarcinoma stage IV
     Dosage: 380 MG, CYCLICAL
     Route: 041
     Dates: start: 20240910, end: 20240910
  2. ERLOTINIB [Concomitant]
     Active Substance: ERLOTINIB
     Indication: Lung adenocarcinoma stage IV
     Dosage: 150 MG, DAILY
     Route: 048
     Dates: start: 20240910, end: 20241003
  3. ESOMEPRAZOLE [Concomitant]
     Active Substance: ESOMEPRAZOLE
     Dosage: 20 MG, DAILY
     Route: 048
     Dates: start: 20221116, end: 20241003
  4. AMLODIPINE BESYLATE [Concomitant]
     Active Substance: AMLODIPINE BESYLATE
     Dosage: 2.5 MG, DAILY
     Route: 048
     Dates: start: 20240422, end: 20241003
  5. MIROGABALIN BESYLATE [Concomitant]
     Active Substance: MIROGABALIN BESYLATE
     Dosage: 5 MG, BID
     Route: 048
     Dates: end: 20241003
  6. TRAMADOL [Concomitant]
     Active Substance: TRAMADOL
     Dosage: 25 MG, BID
     Route: 048
     Dates: end: 20241003
  7. MINOCYCLINE HYDROCHLORIDE [Concomitant]
     Active Substance: MINOCYCLINE HYDROCHLORIDE
     Indication: Prophylaxis
     Dosage: 100 MG, DAILY
     Route: 048
     Dates: start: 20240920, end: 20241003
  8. BISOPROLOL [Concomitant]
     Active Substance: BISOPROLOL
     Dosage: 4 MG, DAILY
     Route: 062
     Dates: start: 20241001, end: 20241003

REACTIONS (3)
  - Thrombophlebitis migrans [Fatal]
  - Seizure [Fatal]
  - Tumour haemorrhage [Fatal]

NARRATIVE: CASE EVENT DATE: 20240921
